FAERS Safety Report 4307749-X (Version None)
Quarter: 2004Q1

REPORT INFORMATION
  Report Type: 
  Country: None (occurrence: None)
  Receive Date: 20040227
  Receipt Date: 20040227
  Transmission Date: 20041129
  Serious: Yes (Other)
  Sender: FDA-Public Use
  Company Number: None

PATIENT
  Age: 60 Year
  Sex: Female
  Weight: 68.0396 kg

DRUGS (3)
  1. COMBIVENT [Suspect]
     Indication: BRONCHITIS
     Dosage: 2 PUFFS 3X A DAY
     Dates: start: 20040130, end: 20040205
  2. AEROBID [Concomitant]
  3. FOSAMAX [Concomitant]

REACTIONS (1)
  - DIARRHOEA [None]
